FAERS Safety Report 6838084-3 (Version None)
Quarter: 2010Q3

REPORT INFORMATION
  Report Type: 
  Country: None (occurrence: None)
  Receive Date: 20100713
  Receipt Date: 20070529
  Transmission Date: 20110219
  Serious: No
  Sender: FDA-Public Use
  Company Number: US-PFIZER INC-2007045356

PATIENT
  Sex: Female
  Weight: 76.2 kg

DRUGS (12)
  1. CHANTIX [Suspect]
     Indication: SMOKING CESSATION THERAPY
     Dates: start: 20070501
  2. ENABLEX [Suspect]
     Indication: BLADDER DISORDER
     Route: 048
  3. PLAVIX [Concomitant]
     Route: 048
  4. ALPRAZOLAM [Concomitant]
     Route: 048
  5. CALTRATE + D [Concomitant]
     Route: 048
  6. ZOCOR [Concomitant]
     Indication: BLOOD TRIGLYCERIDES INCREASED
     Route: 048
  7. LISINOPRIL [Concomitant]
     Route: 048
  8. AVANDIA [Concomitant]
     Route: 048
  9. METFORMIN [Concomitant]
     Route: 048
  10. THEOPHYLLINE [Concomitant]
     Route: 048
  11. ALL OTHER THERAPEUTIC PRODUCTS [Concomitant]
     Route: 048
  12. GABAPENTIN [Concomitant]
     Route: 048

REACTIONS (4)
  - DYSPNOEA [None]
  - NAUSEA [None]
  - NERVOUSNESS [None]
  - VOMITING [None]
